FAERS Safety Report 5077073-9 (Version None)
Quarter: 2006Q3

REPORT INFORMATION
  Report Type: 
  Country: None (occurrence: None)
  Receive Date: 20060810
  Receipt Date: 20041004
  Transmission Date: 20061208
  Serious: Yes (Other)
  Sender: FDA-Public Use
  Company Number: US-GLAXOSMITHKLINE-A0529059A

PATIENT
  Sex: Female

DRUGS (10)
  1. PAXIL [Suspect]
     Indication: DEPRESSION
     Route: 048
  2. GLUCOVANCE [Concomitant]
  3. HUMULIN 70/30 [Concomitant]
  4. LISINOPRIL [Concomitant]
  5. PRAVACHOL [Concomitant]
  6. PROTONIX [Concomitant]
  7. ADVIL [Concomitant]
  8. ACETAMINOPHEN [Concomitant]
  9. NEURONTIN [Concomitant]
  10. ASPIRIN [Concomitant]

REACTIONS (2)
  - DEPENDENCE [None]
  - DRUG WITHDRAWAL SYNDROME [None]
